FAERS Safety Report 11830398 (Version 4)
Quarter: 2016Q3

REPORT INFORMATION
  Report Type: Spontaneous
  Country: US (occurrence: US)
  Receive Date: 20151214
  Receipt Date: 20160907
  Transmission Date: 20161109
  Serious: Yes (Other)
  Sender: FDA-Public Use
  Company Number: US-JNJFOC-20151201120

PATIENT
  Age: 41 Year
  Sex: Female
  Weight: 102.06 kg

DRUGS (20)
  1. LEVAQUIN [Suspect]
     Active Substance: LEVOFLOXACIN
     Indication: PNEUMONIA
     Route: 048
     Dates: start: 20090407, end: 20090417
  2. LEVAQUIN [Suspect]
     Active Substance: LEVOFLOXACIN
     Indication: MYOMECTOMY
     Route: 048
     Dates: start: 20050515, end: 2005
  3. LEVAQUIN [Suspect]
     Active Substance: LEVOFLOXACIN
     Indication: MYOMECTOMY
     Route: 048
     Dates: start: 20050815, end: 20050823
  4. LEVAQUIN [Suspect]
     Active Substance: LEVOFLOXACIN
     Indication: CELLULITIS
     Route: 048
     Dates: start: 20090506, end: 20090516
  5. LEVAQUIN [Suspect]
     Active Substance: LEVOFLOXACIN
     Indication: MYOMECTOMY
     Route: 048
     Dates: start: 20050901, end: 20050907
  6. LEVAQUIN [Suspect]
     Active Substance: LEVOFLOXACIN
     Indication: URINARY TRACT INFECTION
     Route: 048
     Dates: start: 20090506, end: 20090516
  7. LEVAQUIN [Suspect]
     Active Substance: LEVOFLOXACIN
     Indication: URINARY TRACT INFECTION
     Route: 048
     Dates: start: 20050515, end: 2005
  8. LEVAQUIN [Suspect]
     Active Substance: LEVOFLOXACIN
     Indication: URINARY TRACT INFECTION
     Route: 048
     Dates: start: 20050815, end: 20050823
  9. LEVAQUIN [Suspect]
     Active Substance: LEVOFLOXACIN
     Indication: MYOMECTOMY
     Route: 048
     Dates: start: 20090407, end: 20090417
  10. LEVAQUIN [Suspect]
     Active Substance: LEVOFLOXACIN
     Indication: PNEUMONIA
     Route: 048
     Dates: start: 20050515, end: 2005
  11. LEVAQUIN [Suspect]
     Active Substance: LEVOFLOXACIN
     Indication: PNEUMONIA
     Route: 048
     Dates: start: 20050815, end: 20050823
  12. LEVAQUIN [Suspect]
     Active Substance: LEVOFLOXACIN
     Indication: CELLULITIS
     Route: 048
     Dates: start: 20050815, end: 20050823
  13. LEVAQUIN [Suspect]
     Active Substance: LEVOFLOXACIN
     Indication: MYOMECTOMY
     Route: 048
     Dates: start: 20090506, end: 20090516
  14. LEVAQUIN [Suspect]
     Active Substance: LEVOFLOXACIN
     Indication: PNEUMONIA
     Route: 048
     Dates: start: 20090506, end: 20090516
  15. LEVAQUIN [Suspect]
     Active Substance: LEVOFLOXACIN
     Indication: CELLULITIS
     Route: 048
     Dates: start: 20050515, end: 2005
  16. LEVAQUIN [Suspect]
     Active Substance: LEVOFLOXACIN
     Indication: PNEUMONIA
     Route: 048
     Dates: start: 20050901, end: 20050907
  17. LEVAQUIN [Suspect]
     Active Substance: LEVOFLOXACIN
     Indication: URINARY TRACT INFECTION
     Route: 048
     Dates: start: 20050901, end: 20050907
  18. LEVAQUIN [Suspect]
     Active Substance: LEVOFLOXACIN
     Indication: URINARY TRACT INFECTION
     Route: 048
     Dates: start: 20090407, end: 20090417
  19. LEVAQUIN [Suspect]
     Active Substance: LEVOFLOXACIN
     Indication: CELLULITIS
     Route: 048
     Dates: start: 20090407, end: 20090417
  20. LEVAQUIN [Suspect]
     Active Substance: LEVOFLOXACIN
     Indication: CELLULITIS
     Route: 048
     Dates: start: 20050901, end: 20050907

REACTIONS (2)
  - Neuropathy peripheral [Not Recovered/Not Resolved]
  - Musculoskeletal pain [Unknown]

NARRATIVE: CASE EVENT DATE: 200506
